FAERS Safety Report 6054549-9 (Version None)
Quarter: 2009Q1

REPORT INFORMATION
  Report Type: 
  Country: None (occurrence: None)
  Receive Date: 20090127
  Receipt Date: 20090122
  Transmission Date: 20090719
  Serious: Yes (Death)
  Sender: FDA-Public Use
  Company Number: PHHY2009JP02409

PATIENT
  Sex: Female

DRUGS (5)
  1. ZOLEDRONIC ACID [Suspect]
     Indication: GASTRIC CANCER
     Dosage: 4 MG, QMO
     Route: 042
     Dates: start: 20070322, end: 20070502
  2. OXYCONTIN [Concomitant]
     Dosage: 10 MG
     Route: 048
     Dates: start: 20070321, end: 20070416
  3. DUROTEP [Concomitant]
     Dosage: 2.5MG
     Route: 048
     Dates: start: 20070416, end: 20070603
  4. FENTAL [Concomitant]
     Dosage: 4.8 MG
     Route: 048
     Dates: start: 20070604, end: 20070705
  5. KETALAR [Concomitant]
     Dosage: 200 MG
     Route: 048
     Dates: start: 20070607, end: 20070705

REACTIONS (2)
  - BLOOD CREATININE DECREASED [None]
  - NEOPLASM MALIGNANT [None]
